FAERS Safety Report 6278378-6 (Version None)
Quarter: 2009Q3

REPORT INFORMATION
  Report Type: 
  Country: None (occurrence: None)
  Receive Date: 20090720
  Receipt Date: 20090720
  Transmission Date: 20100115
  Serious: No
  Sender: FDA-Public Use
  Company Number: None

PATIENT
  Age: 67 Year
  Sex: Female
  Weight: 68.0396 kg

DRUGS (1)
  1. ACTONEL [Suspect]
     Indication: BONE DENSITY DECREASED
     Dosage: 1 PILL MONTHLY PO
     Route: 048
     Dates: start: 20090302, end: 20090602

REACTIONS (3)
  - MALAISE [None]
  - PAIN [None]
  - PYREXIA [None]
